APPROVED DRUG PRODUCT: DEXMEDETOMIDINE HYDROCHLORIDE
Active Ingredient: DEXMEDETOMIDINE HYDROCHLORIDE
Strength: EQ 1MG BASE/250ML (EQ 4MCG BASE/ML)
Dosage Form/Route: INJECTABLE;INJECTION
Application: A206407 | Product #003 | TE Code: AP
Applicant: HIKMA PHARMACEUTICALS USA INC
Approved: May 30, 2025 | RLD: No | RS: No | Type: RX